FAERS Safety Report 8890186 (Version 1)
Quarter: 2012Q4

REPORT INFORMATION
  Report Type: Spontaneous
  Country: JP (occurrence: None)
  Receive Date: 20121031
  Receipt Date: 20121031
  Transmission Date: 20130627
  Serious: Yes (Other)
  Sender: FDA-Public Use
  Company Number: JP 2006 0003

PATIENT
  Age: 66 Year
  Sex: Male

DRUGS (3)
  1. LIPIODOL (ETHIODIZED OIL) UNKNOWN [Suspect]
     Indication: TRANSCATHETER ARTERIAL EMBOLIZATION
     Dosage: (2 ml, 1 in 1  D)
     Route: 013
     Dates: start: 20060210, end: 20060210
  2. IOPAMIRON [Suspect]
     Indication: ANGIOGRAPHY
     Dosage: (5 ml, 1 in 1 D)
     Dates: start: 20060210, end: 20060210
  3. CISPLATINE (CISPLATINE) [Suspect]
     Indication: DRUG USE FOR UNKNOWN INDICATION
     Dosage: (50 mg, 1 in 1 d)

REACTIONS (2)
  - Anaphylactic shock [None]
  - Off label use [None]
